FAERS Safety Report 22100910 (Version 1)
Quarter: 2023Q1

REPORT INFORMATION
  Report Type: Spontaneous
  Country: US (occurrence: None)
  Receive Date: 20230316
  Receipt Date: 20230316
  Transmission Date: 20230418
  Serious: Yes (Hospitalization)
  Sender: FDA-Public Use
  Company Number: 2023A058642

PATIENT
  Age: 957 Month
  Sex: Female
  Weight: 62.6 kg

DRUGS (2)
  1. BREZTRI [Suspect]
     Active Substance: BUDESONIDE\FORMOTEROL\GLYCOPYRROLATE
     Indication: Chronic obstructive pulmonary disease
     Dosage: 2 PUFFS TWICE A DAY
     Route: 055
     Dates: start: 20230205
  2. SYMBICORT [Suspect]
     Active Substance: BUDESONIDE\FORMOTEROL FUMARATE DIHYDRATE
     Indication: Chronic obstructive pulmonary disease
     Dosage: 2 PUFFS TWICE A DAY
     Route: 055
     Dates: end: 202301

REACTIONS (6)
  - Fall [Unknown]
  - Wrist fracture [Unknown]
  - Hip fracture [Unknown]
  - Incorrect dose administered [Unknown]
  - Anxiety [Unknown]
  - Dental caries [Unknown]

NARRATIVE: CASE EVENT DATE: 20221001
